FAERS Safety Report 9268866 (Version 7)
Quarter: 2014Q1

REPORT INFORMATION
  Report Type: Report from Study
  Country: DE (occurrence: DE)
  Receive Date: 20130503
  Receipt Date: 20140130
  Transmission Date: 20141002
  Serious: Yes (Hospitalization)
  Sender: FDA-Public Use
  Company Number: PHHO2013DE005208

PATIENT
  Age: 58 Year
  Sex: Female
  Weight: 83 kg

DRUGS (4)
  1. PLACEBO [Suspect]
     Indication: ASTHMA
     Dosage: UNK
     Route: 055
     Dates: start: 20130301, end: 20130522
  2. CLARITHROMYCIN [Suspect]
     Dosage: 500 MG, BID
     Route: 048
     Dates: start: 20130417
  3. MOMETASONE SANDOZ [Suspect]
     Indication: ASTHMA
     Dosage: 200 UG, QD
     Route: 055
     Dates: start: 20130214
  4. CARMEN [Concomitant]
     Indication: HYPERTENSION
     Dosage: 5 MG, BID
     Route: 048
     Dates: start: 201210

REACTIONS (2)
  - Atrial flutter [Recovered/Resolved]
  - Asthma [Recovered/Resolved]
